FAERS Safety Report 8529587-4 (Version None)
Quarter: 2012Q2

REPORT INFORMATION
  Report Type: 
  Country: None (occurrence: None)
  Receive Date: 20120409
  Receipt Date: 20110603
  Transmission Date: 20120825
  Serious: Yes (Death)
  Sender: FDA-Public Use
  Company Number: 2011-083

PATIENT
  Age: 59 Year
  Sex: Female

DRUGS (4)
  1. LEXAPRO [Concomitant]
  2. ARICEPT [Concomitant]
  3. THORAZINE [Concomitant]
  4. FAZACLO ODT [Suspect]
     Indication: DEMENTIA
     Dosage: 62.5 MG, QD, ORAL
     Route: 048
     Dates: start: 20070811

REACTIONS (1)
  - PNEUMONIA ASPIRATION [None]
